FAERS Safety Report 18112928 (Version 1)
Quarter: 2020Q3

REPORT INFORMATION
  Report Type: Spontaneous
  Country: US (occurrence: US)
  Receive Date: 20200804
  Receipt Date: 20200804
  Transmission Date: 20201103
  Serious: No
  Sender: FDA-Public Use
  Company Number: None

PATIENT
  Sex: Female

DRUGS (1)
  1. DALFAMPRIDINE ER 10MG AUROBINDO PHARMA [Suspect]
     Active Substance: DALFAMPRIDINE
     Indication: MULTIPLE SCLEROSIS
     Route: 048
     Dates: start: 20200319

REACTIONS (12)
  - Initial insomnia [None]
  - Chills [None]
  - Paraesthesia [None]
  - Asthenia [None]
  - Balance disorder [None]
  - Therapy interrupted [None]
  - Abdominal pain upper [None]
  - Headache [None]
  - Dizziness [None]
  - Back pain [None]
  - Middle insomnia [None]
  - Skin burning sensation [None]
